FAERS Safety Report 8946045 (Version 1)
Quarter: 2012Q4

REPORT INFORMATION
  Report Type: 
  Country: US (occurrence: US)
  Receive Date: 20121204
  Receipt Date: 20121204
  Transmission Date: 20130627
  Serious: No
  Sender: FDA-Public Use
  Company Number: US-AMGEN-USASP2012072274

PATIENT
  Age: 47 Year
  Sex: Male
  Weight: 90.7 kg

DRUGS (4)
  1. ENBREL [Suspect]
     Indication: PSORIASIS
     Dosage: 50 mg, bi-weekly
     Dates: start: 20120910, end: 20121107
  2. HUMIRA [Concomitant]
     Dosage: UNK
  3. TYLENOL /00020001/ [Concomitant]
     Dosage: UNK
     Route: 048
  4. BENADRYL                           /00000402/ [Concomitant]
     Dosage: UNK
     Route: 048

REACTIONS (5)
  - Stasis dermatitis [Recovering/Resolving]
  - Skin fissures [Recovered/Resolved]
  - Skin haemorrhage [Recovered/Resolved]
  - Skin lesion [Recovered/Resolved]
  - Psoriasis [Recovered/Resolved]
